FAERS Safety Report 8965256 (Version 5)
Quarter: 2013Q2

REPORT INFORMATION
  Report Type: Spontaneous
  Country: US (occurrence: US)
  Receive Date: 20121213
  Receipt Date: 20130424
  Transmission Date: 20140414
  Serious: No
  Sender: FDA-Public Use
  Company Number: US-PFIZER INC-2012309876

PATIENT
  Age: 84 Year
  Sex: Male

DRUGS (1)
  1. VIAGRA [Suspect]
     Dosage: 100 MG, UNK
     Dates: start: 20110815, end: 20121206

REACTIONS (3)
  - Disturbance in sexual arousal [Unknown]
  - Drug ineffective [Unknown]
  - Drug effect decreased [Unknown]
